FAERS Safety Report 23835345 (Version 2)
Quarter: 2024Q2

REPORT INFORMATION
  Report Type: Report from Study
  Country: US (occurrence: US)
  Receive Date: 20240509
  Receipt Date: 20240621
  Transmission Date: 20240717
  Serious: Yes (Hospitalization)
  Sender: FDA-Public Use
  Company Number: US-HORIZON THERAPEUTICS-HZN-2024-002998

PATIENT
  Age: 53 Year
  Sex: Male
  Weight: 79 kg

DRUGS (2)
  1. TEPEZZA [Suspect]
     Active Substance: TEPROTUMUMAB-TRBW
     Indication: Endocrine ophthalmopathy
     Dosage: UNK UNK, Q3WK, FIRST INFUSION
     Route: 042
     Dates: start: 20240223, end: 2024
  2. TEPEZZA [Suspect]
     Active Substance: TEPROTUMUMAB-TRBW
     Dosage: UNK
     Route: 042
     Dates: start: 2024

REACTIONS (2)
  - Diabetic foot [Unknown]
  - Weight decreased [Unknown]
